FAERS Safety Report 13967035 (Version 1)
Quarter: 2017Q3

REPORT INFORMATION
  Report Type: Spontaneous
  Country: FR (occurrence: FR)
  Receive Date: 20170914
  Receipt Date: 20170914
  Transmission Date: 20171128
  Serious: Yes (Hospitalization, Other)
  Sender: FDA-Public Use
  Company Number: FR-BRISTOL-MYERS SQUIBB COMPANY-BMS-2017-078398

PATIENT
  Age: 65 Year
  Sex: Male

DRUGS (2)
  1. CELLCEPT [Suspect]
     Active Substance: MYCOPHENOLATE MOFETIL\MYCOPHENOLATE MOFETIL HYDROCHLORIDE
     Indication: IMMUNOSUPPRESSION
     Dosage: 500 MG, 2 IN THE MNG AND 2 IN EVENG
     Route: 065
  2. NULOJIX [Suspect]
     Active Substance: BELATACEPT
     Indication: RENAL TRANSPLANT
     Dosage: 5 MG/KG, UNK
     Route: 042
     Dates: start: 201612, end: 201708

REACTIONS (10)
  - Erysipelas [Not Recovered/Not Resolved]
  - Septic shock [Unknown]
  - Bacterial colitis [Recovering/Resolving]
  - Cytomegalovirus colitis [Recovering/Resolving]
  - Infected lymphocele [Unknown]
  - Lung disorder [Recovering/Resolving]
  - Renal tubular necrosis [Recovered/Resolved]
  - Ascites [Unknown]
  - Encapsulating peritoneal sclerosis [Recovering/Resolving]
  - Pyoderma gangrenosum [Not Recovered/Not Resolved]

NARRATIVE: CASE EVENT DATE: 201703
